FAERS Safety Report 5201864-4 (Version None)
Quarter: 2006Q4

REPORT INFORMATION
  Report Type: 
  Country: None (occurrence: None)
  Receive Date: 20061003
  Receipt Date: 20060526
  Transmission Date: 20070319
  Serious: Yes (Hospitalization, Disabling)
  Sender: FDA-Public Use
  Company Number: 2006-0009658

PATIENT
  Age: 52 Year
  Sex: Male
  Weight: 61.6892 kg

DRUGS (8)
  1. TRUVADA [Suspect]
     Indication: HIV INFECTION
     Dosage: 1 DOSAGE FORMS, 1 IN 1 D, ORAL
     Route: 048
     Dates: start: 20060213, end: 20060315
  2. SUSTIVA [Concomitant]
  3. RIFAMATE (RIFINAH) [Concomitant]
  4. ETHAMBUTOL HYDROCHLORIDE [Concomitant]
  5. PYRAZINAMIDE [Concomitant]
  6. COZAAR [Concomitant]
  7. NORVASC [Concomitant]
  8. HYDROCHLOROTHIAZIDE [Concomitant]

REACTIONS (1)
  - RENAL FAILURE [None]
